FAERS Safety Report 14759103 (Version 1)
Quarter: 2018Q2

REPORT INFORMATION
  Report Type: Spontaneous
  Country: IT (occurrence: IT)
  Receive Date: 20180413
  Receipt Date: 20180413
  Transmission Date: 20180711
  Serious: Yes (Other)
  Sender: FDA-Public Use
  Company Number: IT-SA-2018SA106091

PATIENT
  Age: 63 Year
  Sex: Male

DRUGS (13)
  1. TRINIPLAS [Concomitant]
     Active Substance: NITROGLYCERIN
     Route: 065
  2. CARVIPRESS [Concomitant]
     Active Substance: CARVEDILOL
     Route: 065
  3. HUMALOG [Suspect]
     Active Substance: INSULIN LISPRO
     Indication: DIABETES MELLITUS
     Route: 058
  4. CARDIOASPIRIN [Concomitant]
     Active Substance: ASPIRIN
     Route: 065
  5. CORLENTOR [Concomitant]
     Active Substance: IVABRADINE HYDROCHLORIDE
     Route: 065
  6. LASIX [Concomitant]
     Active Substance: FUROSEMIDE
     Route: 065
  7. TRIOREG [Concomitant]
     Route: 065
  8. TARDYFER [Concomitant]
     Active Substance: FERROUS SULFATE
     Route: 065
  9. LUVION [Concomitant]
     Route: 065
  10. INSULIN GLARGINE [Suspect]
     Active Substance: INSULIN GLARGINE
     Indication: DIABETES MELLITUS
     Route: 058
  11. NORVASC [Concomitant]
     Active Substance: AMLODIPINE BESYLATE
     Route: 065
  12. AXAGON [Concomitant]
     Active Substance: ESOMEPRAZOLE
     Route: 065
  13. TRIATEC (RAMIPRIL) [Concomitant]
     Active Substance: RAMIPRIL
     Route: 065

REACTIONS (3)
  - Sopor [Recovering/Resolving]
  - Hyperglycaemia [Recovering/Resolving]
  - Fall [Recovering/Resolving]

NARRATIVE: CASE EVENT DATE: 20180306
